FAERS Safety Report 15009711 (Version 4)
Quarter: 2018Q3

REPORT INFORMATION
  Report Type: Spontaneous
  Country: ES (occurrence: ES)
  Receive Date: 20180614
  Receipt Date: 20180905
  Transmission Date: 20181010
  Serious: Yes (Other)
  Sender: FDA-Public Use
  Company Number: ES-SUN PHARMACEUTICAL INDUSTRIES LTD-2018RR-175654

PATIENT
  Age: 14 Year
  Sex: Female

DRUGS (9)
  1. VINCRISTINE [Suspect]
     Active Substance: VINCRISTINE
     Indication: EWING^S SARCOMA
     Dosage: ON DAY ONE; COMPLETED SIX CYCLES PRIOR TO SURGICAL RESECTION.
     Route: 042
     Dates: start: 200904
  2. ACTINOMYCIN D [Suspect]
     Active Substance: DACTINOMYCIN
     Indication: EWING^S SARCOMA
     Dosage: 0.75 MG/M2, QD
     Route: 042
     Dates: start: 200910
  3. CYCLOPHOSPHAMIDE. [Suspect]
     Active Substance: CYCLOPHOSPHAMIDE
     Indication: EWING^S SARCOMA
     Dosage: 1500 MG/M2, ON DAY 1; EVERY THREE WEEKS X 8 CYCLES
     Route: 042
     Dates: start: 200910
  4. DOXORUBICIN [Suspect]
     Active Substance: DOXORUBICIN
     Indication: EWING^S SARCOMA
     Dosage: 20 MG/M2, QD
     Route: 042
     Dates: start: 200904
  5. TEMOZOLOMIDE. [Suspect]
     Active Substance: TEMOZOLOMIDE
     Indication: EWING^S SARCOMA
     Dosage: 100 MG/M2,QD ON DAYS 1?21
     Route: 048
     Dates: start: 201004
  6. IFOSFAMIDE. [Suspect]
     Active Substance: IFOSFAMIDE
     Indication: EWING^S SARCOMA
     Dosage: 3000MG/M2; DAYS 1?3 COMPLETED SIX CYCLES PRIOR TO SURGICAL REACTION
     Route: 042
     Dates: start: 200904
  7. ETOPOSIDE. [Suspect]
     Active Substance: ETOPOSIDE
     Indication: EWING^S SARCOMA
     Dosage: ON DAYS 1?3 (EVERY THREE WEEKS X 6 CYCLES). COMPLETED SIX CYCLES PRIOR TO SURGICAL RESECTION
     Route: 042
     Dates: start: 200904
  8. BEVACIZUMAB. [Suspect]
     Active Substance: BEVACIZUMAB
     Indication: EWING^S SARCOMA
     Dosage: ON DAY 1 (EVERY 21 DAYS X 5 CYCLES)
     Route: 042
     Dates: start: 201004
  9. IRINOTECAN [Suspect]
     Active Substance: IRINOTECAN
     Indication: EWING^S SARCOMA
     Dosage: ON DAYS 1?5 AND 8?13
     Route: 048
     Dates: start: 201004

REACTIONS (2)
  - Drug ineffective [Unknown]
  - Drug effect incomplete [Unknown]
